FAERS Safety Report 9414505 (Version 1)
Quarter: 2013Q3

REPORT INFORMATION
  Report Type: Spontaneous
  Country: CH (occurrence: CH)
  Receive Date: 20130723
  Receipt Date: 20130723
  Transmission Date: 20140515
  Serious: Yes (Hospitalization)
  Sender: FDA-Public Use
  Company Number: CH-GLAXOSMITHKLINE-B0909821A

PATIENT
  Age: 50 Year
  Sex: Female

DRUGS (5)
  1. TROBALT [Suspect]
     Indication: EPILEPSY
     Dosage: 200MG THREE TIMES PER DAY
     Route: 048
     Dates: start: 20110923, end: 20111011
  2. VIMPAT [Suspect]
     Indication: EPILEPSY
     Dosage: 150MG TWICE PER DAY
     Route: 048
     Dates: start: 2009, end: 20111010
  3. TOPOMAX [Suspect]
     Indication: EPILEPSY
     Dosage: 50MG TWICE PER DAY
     Route: 048
  4. LAMICTAL [Suspect]
     Indication: EPILEPSY
     Dosage: 200MG THREE TIMES PER DAY
     Route: 048
  5. MOGADON [Suspect]
     Indication: PRODUCT USED FOR UNKNOWN INDICATION
     Dosage: 5MG PER DAY
     Route: 048

REACTIONS (5)
  - Hallucination [Recovered/Resolved]
  - Diplopia [Unknown]
  - Hypotension [Unknown]
  - Depressed level of consciousness [Unknown]
  - Morbid thoughts [Unknown]
